FAERS Safety Report 9931604 (Version 2)
Quarter: 2014Q1

REPORT INFORMATION
  Report Type: Spontaneous
  Country: CA (occurrence: CA)
  Receive Date: 20140228
  Receipt Date: 20140228
  Transmission Date: 20141002
  Serious: Yes (Other)
  Sender: FDA-Public Use
  Company Number: CA-AMGEN-CANSP2012075852

PATIENT
  Age: 50 Year
  Sex: Female

DRUGS (6)
  1. ENBREL [Suspect]
     Indication: PSORIASIS
     Dosage: 50 MG, 2 TIMES/WK
     Route: 065
     Dates: start: 20120224, end: 20130101
  2. PLAQUENIL                          /00072602/ [Concomitant]
     Dosage: UNK
  3. TAMOSIN                            /00388702/ [Concomitant]
     Dosage: 10 MG, QD
  4. METHOTREXATE [Concomitant]
     Dosage: UNK
  5. PRISTIQ [Concomitant]
     Dosage: UNK
  6. FOLIC ACID [Concomitant]
     Dosage: UNK

REACTIONS (2)
  - Rheumatoid arthritis [Unknown]
  - Recurring skin boils [Recovered/Resolved]
